FAERS Safety Report 4878528-X (Version None)
Quarter: 2005Q4

REPORT INFORMATION
  Report Type: 
  Country: None (occurrence: None)
  Receive Date: 20051209
  Receipt Date: 20050426
  Transmission Date: 20060501
  Serious: Yes (Other)
  Sender: FDA-Public Use
  Company Number: USA-2005-0020005

PATIENT
  Age: 16 Year
  Sex: Female

DRUGS (4)
  1. OXYCONTIN [Suspect]
     Route: 065
  2. ECSTACY (MDMA3, 4-METHYLELENEDIOXYMETHAMPHETAMINE) [Suspect]
     Route: 065
  3. VICODIN [Suspect]
     Route: 065
  4. MUSHROOMS [Suspect]
     Route: 065

REACTIONS (1)
  - POLYSUBSTANCE ABUSE [None]
